FAERS Safety Report 8793351 (Version 1)
Quarter: 2012Q4

REPORT INFORMATION
  Report Type: 
  Country: US (occurrence: US)
  Receive Date: 20120917
  Receipt Date: 20120917
  Transmission Date: 20130627
  Serious: No
  Sender: FDA-Public Use
  Company Number: US-ASTRAZENECA-2012SE69927

PATIENT
  Age: 60 Year
  Sex: Female
  Weight: 88.5 kg

DRUGS (2)
  1. SEROQUEL IR [Suspect]
     Indication: BIPOLAR DISORDER
     Route: 048
     Dates: start: 201104
  2. SEROQUEL IR [Suspect]
     Indication: BIPOLAR DISORDER
     Route: 048

REACTIONS (4)
  - Emotional disorder [Unknown]
  - Crying [Unknown]
  - Sleep disorder [Unknown]
  - Drug dose omission [Unknown]
